FAERS Safety Report 4492488-5 (Version None)
Quarter: 2004Q4

REPORT INFORMATION
  Report Type: 
  Country: None (occurrence: None)
  Receive Date: 20041029
  Receipt Date: 20041020
  Transmission Date: 20050328
  Serious: Yes (Other)
  Sender: FDA-Public Use
  Company Number: STA-AE-04-MTX-505

PATIENT
  Age: 45 Year
  Sex: Male

DRUGS (3)
  1. METHOTREXATE [Suspect]
     Indication: ARTHRALGIA
     Dosage: 12.5 MG 1X PER WK, ORAL
     Route: 048
     Dates: start: 19940101
  2. MATRIX (METHOTREXATE, 0) [Suspect]
     Indication: ARTHRALGIA
     Dates: start: 19940101
  3. LEUCOVORIN CALCIUM [Concomitant]

REACTIONS (3)
  - CEREBRAL INFARCTION [None]
  - CEREBROVASCULAR DISORDER [None]
  - EPILEPSY [None]
